FAERS Safety Report 10061997 (Version 2)
Quarter: 2014Q2

REPORT INFORMATION
  Report Type: Spontaneous
  Country: US (occurrence: None)
  Receive Date: 20140403
  Receipt Date: 20140502
  Transmission Date: 20141212
  Serious: Yes (Hospitalization)
  Sender: FDA-Public Use
  Company Number: UTC-046505

PATIENT
  Age: 63 Year
  Sex: Female

DRUGS (3)
  1. TYVASO [Suspect]
     Indication: COR PULMONALE CHRONIC
     Dosage: 288 MCG (72 MCG, 4 IN 1 D), INHALATION
     Route: 055
     Dates: start: 20110215
  2. LETAIRIS (AMBRISENTAN) (TABLETS) [Concomitant]
  3. WARFARIN (WARFARIN) [Concomitant]

REACTIONS (7)
  - Oedema [None]
  - Dyspnoea [None]
  - Anaemia [None]
  - Weight increased [None]
  - Pneumonia [None]
  - Orthostatic hypotension [None]
  - Dizziness [None]
